FAERS Safety Report 9189238 (Version 1)
Quarter: 2013Q1

REPORT INFORMATION
  Report Type: Spontaneous
  Country: US (occurrence: None)
  Receive Date: 20130321
  Receipt Date: 20130321
  Transmission Date: 20140127
  Serious: Yes (Life-Threatening, Hospitalization, Disabling)
  Sender: FDA-Public Use
  Company Number: None

PATIENT
  Age: 41 Year
  Sex: Female
  Weight: 62.6 kg

DRUGS (1)
  1. KARIVA 0.15MG / 0.02 MG AND 0.01 MG TEVA [Suspect]
     Indication: CONTRACEPTION
     Dosage: 1 TABLET DAILY PO
     Route: 048
     Dates: start: 20090101, end: 20120404

REACTIONS (4)
  - Aphasia [None]
  - Cerebral artery occlusion [None]
  - Cerebral infarction [None]
  - Hemiparesis [None]
